FAERS Safety Report 24749774 (Version 1)
Quarter: 2024Q4

REPORT INFORMATION
  Report Type: Spontaneous
  Country: TR (occurrence: TR)
  Receive Date: 20241218
  Receipt Date: 20241218
  Transmission Date: 20250114
  Serious: Yes (Other)
  Sender: ABBVIE
  Company Number: TR-ABBVIE-6050791

PATIENT
  Age: 82 Year
  Sex: Male

DRUGS (1)
  1. VENETOCLAX [Suspect]
     Active Substance: VENETOCLAX
     Indication: Acute myeloid leukaemia
     Dosage: {DF}
     Route: 048
     Dates: start: 2023

REACTIONS (3)
  - Bone marrow failure [Recovering/Resolving]
  - Cytopenia [Recovering/Resolving]
  - Neutropenia [Recovering/Resolving]
